FAERS Safety Report 17444815 (Version 1)
Quarter: 2020Q1

REPORT INFORMATION
  Report Type: Spontaneous
  Country: NL (occurrence: NL)
  Receive Date: 20200221
  Receipt Date: 20200221
  Transmission Date: 20200409
  Serious: Yes (Other)
  Sender: FDA-Public Use
  Company Number: NL-TEVA-2020-NL-1189059

PATIENT
  Age: 57 Year
  Sex: Female
  Weight: 105 kg

DRUGS (2)
  1. EUTHYROX (LEVOTHYROXINE) [Concomitant]
  2. LOSARTAN KALIUM [Suspect]
     Active Substance: LOSARTAN POTASSIUM
     Indication: HYPERTENSION
     Dosage: 50 MG., 1X DAILY, 1
     Dates: start: 20190701, end: 20191121

REACTIONS (4)
  - Heart rate decreased [Recovered/Resolved]
  - Malaise [Recovered/Resolved]
  - Arrhythmia [Recovered/Resolved]
  - Dizziness [Recovered/Resolved]

NARRATIVE: CASE EVENT DATE: 20191015
